FAERS Safety Report 14649811 (Version 2)
Quarter: 2018Q3

REPORT INFORMATION
  Report Type: Spontaneous
  Country: FI (occurrence: FI)
  Receive Date: 20180316
  Receipt Date: 20180716
  Transmission Date: 20181010
  Serious: Yes (Other)
  Sender: FDA-Public Use
  Company Number: FI-PFIZER INC-2018104133

PATIENT
  Age: 51 Year
  Sex: Female

DRUGS (11)
  1. DOCETAXEL. [Suspect]
     Active Substance: DOCETAXEL
     Indication: HER-2 POSITIVE BREAST CANCER
     Dosage: UNK, CYCLIC (AS 1ST LINE TREATMENT, 9 CYCLES)
     Dates: start: 201001
  2. HERCEPTIN [Suspect]
     Active Substance: TRASTUZUMAB
     Dosage: UNK UNK, CYCLIC (AS MAINTENANCE THERAPY, 6 TREATMENTS)
     Dates: start: 201411, end: 201503
  3. DOCETAXEL. [Suspect]
     Active Substance: DOCETAXEL
     Dosage: UNK, CYCLIC (AS MAINTENANCE THERAPY, 6 TREATMENTS)
     Dates: start: 201411, end: 201503
  4. HERCEPTIN [Suspect]
     Active Substance: TRASTUZUMAB
     Dosage: AS MAINTENANCE THERAPY
     Dates: start: 201011
  5. HERCEPTIN [Suspect]
     Active Substance: TRASTUZUMAB
     Dosage: AS MAINTENANCE THERAPY
     Dates: start: 201703
  6. ZOMETA [Concomitant]
     Active Substance: ZOLEDRONIC ACID
     Dosage: AS MAINTENANCE THERAPY
     Dates: start: 201011, end: 201308
  7. KADCYLA [Suspect]
     Active Substance: ADO-TRASTUZUMAB EMTANSINE
     Indication: HER-2 POSITIVE BREAST CANCER
     Dosage: AS 2ND LINE TREATMENT
     Route: 042
     Dates: start: 2015, end: 201703
  8. ZOMETA [Concomitant]
     Active Substance: ZOLEDRONIC ACID
     Indication: HER-2 POSITIVE BREAST CANCER
     Dosage: AS 1ST LINE TREATMENT, 9 CYCLES
     Dates: start: 2010
  9. HERCEPTIN [Suspect]
     Active Substance: TRASTUZUMAB
     Indication: HER-2 POSITIVE BREAST CANCER
     Dosage: UNK, CYCLIC (AS 1ST LINE TREATMENT, 9 CYCLES)
     Dates: start: 2010
  10. XGEVA [Concomitant]
     Active Substance: DENOSUMAB
     Indication: HER-2 POSITIVE BREAST CANCER
     Dosage: UNK
     Dates: start: 201308
  11. XGEVA [Concomitant]
     Active Substance: DENOSUMAB
     Dosage: AS MAINTENANCE THERAPY, 6 TREATMENTS
     Route: 065
     Dates: start: 201411, end: 201503

REACTIONS (13)
  - Transaminases increased [Recovering/Resolving]
  - Headache [Recovered/Resolved]
  - Thrombocytopenia [Unknown]
  - Septic shock [Unknown]
  - Epistaxis [Unknown]
  - Telangiectasia [Unknown]
  - Neuropathy peripheral [Recovered/Resolved]
  - Osteoarthritis [Recovered/Resolved]
  - Fatigue [Recovered/Resolved]
  - Muscle spasms [Unknown]
  - Haemangioma [Unknown]
  - Muscular weakness [Unknown]
  - Erysipelas [Unknown]

NARRATIVE: CASE EVENT DATE: 2013
